FAERS Safety Report 6804015-5 (Version None)
Quarter: 2010Q2

REPORT INFORMATION
  Report Type: 
  Country: None (occurrence: None)
  Receive Date: 20100628
  Receipt Date: 20060810
  Transmission Date: 20101027
  Serious: No
  Sender: FDA-Public Use
  Company Number: US-PFIZER INC-2006099838

PATIENT
  Sex: Male
  Weight: 91.63 kg

DRUGS (1)
  1. SUTENT [Suspect]
     Indication: GASTROOESOPHAGEAL CANCER
     Route: 065

REACTIONS (1)
  - NIGHT SWEATS [None]
